FAERS Safety Report 19092521 (Version 3)
Quarter: 2021Q2

REPORT INFORMATION
  Report Type: Spontaneous
  Country: JP (occurrence: JP)
  Receive Date: 20210405
  Receipt Date: 20210603
  Transmission Date: 20210717
  Serious: Yes (Hospitalization)
  Sender: FDA-Public Use
  Company Number: JP-AMGEN-JPNSP2021048933

PATIENT

DRUGS (1)
  1. EVENITY [Suspect]
     Active Substance: ROMOSOZUMAB-AQQG
     Indication: OSTEOPOROSIS
     Dosage: 210 MILLIGRAM, Q4WK
     Route: 058

REACTIONS (13)
  - Serum procollagen type I N-terminal propeptide decreased [Unknown]
  - Blood alkaline phosphatase decreased [Unknown]
  - Fracture [Unknown]
  - Blood calcium decreased [Unknown]
  - Pancreatic enzymes increased [Unknown]
  - Blood parathyroid hormone increased [Unknown]
  - Adverse event [Unknown]
  - Vomiting [Unknown]
  - Dental care [Unknown]
  - Pyrexia [Unknown]
  - Unevaluable event [Unknown]
  - Hepatic enzyme increased [Unknown]
  - Injection site pain [Unknown]
